FAERS Safety Report 25645532 (Version 1)
Quarter: 2025Q3

REPORT INFORMATION
  Report Type: Report from Study
  Country: MX (occurrence: MX)
  Receive Date: 20250805
  Receipt Date: 20250805
  Transmission Date: 20251021
  Serious: Yes (Other)
  Sender: UCB
  Company Number: MX-UCBSA-2025048170

PATIENT
  Age: 49 Year
  Sex: Female
  Weight: 60 kg

DRUGS (1)
  1. BIMEKIZUMAB [Suspect]
     Active Substance: BIMEKIZUMAB
     Indication: Product used for unknown indication
     Dosage: 320 MILLIGRAM, EV 4 WEEKS
     Route: 058
     Dates: start: 20241001, end: 20250401

REACTIONS (5)
  - Breast prosthesis removal [Unknown]
  - Oral candidiasis [Unknown]
  - Urinary tract infection [Unknown]
  - Psoriasis [Unknown]
  - Device related infection [Unknown]

NARRATIVE: CASE EVENT DATE: 20250101
